FAERS Safety Report 23808665 (Version 3)
Quarter: 2024Q3

REPORT INFORMATION
  Report Type: Spontaneous
  Country: PT (occurrence: None)
  Receive Date: 20240502
  Receipt Date: 20240906
  Transmission Date: 20241017
  Serious: Yes (Other)
  Sender: ASTRAZENECA
  Company Number: 2024A100811

PATIENT
  Age: 81 Year
  Sex: Female

DRUGS (6)
  1. BYDUREON [Suspect]
     Active Substance: EXENATIDE
     Indication: Diabetes mellitus
     Dosage: 1 WEEKLY ADMINISTRATION
     Route: 058
     Dates: start: 20240218, end: 20240620
  2. ROSUVASTATIN [Concomitant]
     Active Substance: ROSUVASTATIN\ROSUVASTATIN CALCIUM
     Indication: Product used for unknown indication
  3. INSULIN GLARGINE [Concomitant]
     Active Substance: INSULIN GLARGINE
     Indication: Product used for unknown indication
  4. SERTRALINE [Concomitant]
     Active Substance: SERTRALINE HYDROCHLORIDE
     Indication: Product used for unknown indication
  5. TAFLUPROST\TIMOLOL [Concomitant]
     Active Substance: TAFLUPROST\TIMOLOL
     Indication: Product used for unknown indication
     Route: 047
  6. METFORMIN HYDROCHLORIDE\SITAGLIPTIN [Concomitant]
     Active Substance: METFORMIN HYDROCHLORIDE\SITAGLIPTIN
     Indication: Product used for unknown indication

REACTIONS (2)
  - Skin mass [Not Recovered/Not Resolved]
  - Device issue [Recovered/Resolved]

NARRATIVE: CASE EVENT DATE: 20240218
